FAERS Safety Report 4923628-9 (Version None)
Quarter: 2006Q1

REPORT INFORMATION
  Report Type: 
  Country: None (occurrence: None)
  Receive Date: 20060227
  Receipt Date: 20050113
  Transmission Date: 20060701
  Serious: Yes (Hospitalization, Disabling)
  Sender: FDA-Public Use
  Company Number: US-MERCK-0501USA01795

PATIENT
  Age: 62 Year
  Sex: Female
  Weight: 127 kg

DRUGS (4)
  1. VIOXX [Suspect]
     Indication: ARTHRALGIA
     Route: 048
     Dates: start: 20000101, end: 20030901
  2. VIOXX [Suspect]
     Route: 048
     Dates: start: 20000101, end: 20030901
  3. VIOXX [Suspect]
     Indication: JOINT STIFFNESS
     Route: 048
     Dates: start: 20000101, end: 20030901
  4. VIOXX [Suspect]
     Route: 048
     Dates: start: 20000101, end: 20030901

REACTIONS (16)
  - ANAEMIA [None]
  - ANAEMIA POSTOPERATIVE [None]
  - ATELECTASIS [None]
  - CARDIOMEGALY [None]
  - CONSTIPATION [None]
  - DEEP VEIN THROMBOSIS [None]
  - DIABETES MELLITUS NON-INSULIN-DEPENDENT [None]
  - DIABETIC NEUROPATHY [None]
  - DYSPNOEA [None]
  - HIATUS HERNIA [None]
  - INTESTINAL POLYP [None]
  - OSTEOARTHRITIS [None]
  - PULMONARY EMBOLISM [None]
  - SEASONAL ALLERGY [None]
  - SHOULDER PAIN [None]
  - THROMBOSIS [None]
